FAERS Safety Report 24005369 (Version 2)
Quarter: 2024Q3

REPORT INFORMATION
  Report Type: Spontaneous
  Country: US (occurrence: US)
  Receive Date: 20240624
  Receipt Date: 20240730
  Transmission Date: 20241016
  Serious: No
  Sender: ALEXION PHARMACEUTICALS
  Company Number: US-AstraZeneca-CH-00649887A

PATIENT
  Sex: Female

DRUGS (1)
  1. KANUMA [Suspect]
     Active Substance: SEBELIPASE ALFA
     Indication: Lysosomal acid lipase deficiency
     Dosage: UNK
     Route: 041
     Dates: start: 202403

REACTIONS (1)
  - Headache [Unknown]
